FAERS Safety Report 10507207 (Version 1)
Quarter: 2014Q4

REPORT INFORMATION
  Report Type: Spontaneous
  Country: US (occurrence: None)
  Receive Date: 20141008
  Receipt Date: 20141008
  Transmission Date: 20150528
  Serious: Yes (Life-Threatening, Hospitalization, Disabling, Other)
  Sender: FDA-Public Use
  Company Number: None

PATIENT
  Age: 84 Year
  Sex: Male

DRUGS (12)
  1. EXCELON PATCH [Concomitant]
  2. DOCUSATE SODIUM. [Suspect]
     Active Substance: DOCUSATE SODIUM
     Indication: MUSCLE SPASMS
     Dosage: SODIUM 5 MG 2 PILLS (ONLY 1 TAKEN) 1 TO 3 PILLS RECOMMENDED AT BEDTIME  BY MOUTH (1 ONLY)
  3. SOSOBRIDE  M N ER [Concomitant]
  4. FLOMAX [Concomitant]
     Active Substance: TAMSULOSIN HYDROCHLORIDE
  5. NOMENDE XA [Concomitant]
  6. FUROSEMIDE. [Concomitant]
     Active Substance: FUROSEMIDE
  7. ASPIRIN. [Concomitant]
     Active Substance: ASPIRIN
  8. ZEGERID OTC [Concomitant]
     Active Substance: OMEPRAZOLE\SODIUM BICARBONATE
  9. DOCUSATE SODIUM. [Suspect]
     Active Substance: DOCUSATE SODIUM
     Indication: CONSTIPATION
     Dosage: SODIUM 5 MG 2 PILLS (ONLY 1 TAKEN) 1 TO 3 PILLS RECOMMENDED AT BEDTIME  BY MOUTH (1 ONLY)
  10. OMEPRAZOLE. [Concomitant]
     Active Substance: OMEPRAZOLE
  11. CYSTINE [Concomitant]
     Active Substance: CYSTINE
  12. URICOLNER [Concomitant]

REACTIONS (4)
  - Rectal haemorrhage [None]
  - Product substitution issue [None]
  - No therapeutic response [None]
  - Product quality issue [None]
